FAERS Safety Report 5359566-X (Version None)
Quarter: 2007Q2

REPORT INFORMATION
  Report Type: 
  Country: None (occurrence: None)
  Receive Date: 20070530
  Receipt Date: 20061120
  Transmission Date: 20071010
  Serious: Yes (Hospitalization)
  Sender: FDA-Public Use
  Company Number: US200607001352

PATIENT
  Age: 49 Year
  Sex: Female
  Weight: 94.8 kg

DRUGS (5)
  1. ZYPREXA [Suspect]
     Dosage: 10 MG
     Dates: start: 19980701
  2. ANAFRANIL /GFR/ (CLOMIPRAMINE HYDROCHLORIDE) [Concomitant]
  3. REZULIN [Concomitant]
  4. LOPRESSOR [Concomitant]
  5. RISPERIDONE [Concomitant]

REACTIONS (2)
  - DIABETES MELLITUS [None]
  - METABOLIC DISORDER [None]
